FAERS Safety Report 11244362 (Version 1)
Quarter: 2015Q3

REPORT INFORMATION
  Report Type: Spontaneous
  Country: US (occurrence: US)
  Receive Date: 20150707
  Receipt Date: 20150707
  Transmission Date: 20151125
  Serious: Yes (Other)
  Sender: FDA-Public Use
  Company Number: US-BAYER-2015-372780

PATIENT

DRUGS (1)
  1. MIDOL PM [Suspect]
     Active Substance: ACETAMINOPHEN\DIPHENHYDRAMINE CITRATE
     Indication: MUSCLE SPASMS

REACTIONS (2)
  - Loss of consciousness [Unknown]
  - Fatigue [Unknown]
